FAERS Safety Report 13829345 (Version 1)
Quarter: 2017Q3

REPORT INFORMATION
  Report Type: Spontaneous
  Country: FR (occurrence: FR)
  Receive Date: 20170803
  Receipt Date: 20170803
  Transmission Date: 20171127
  Serious: Yes (Hospitalization)
  Sender: FDA-Public Use
  Company Number: FR-PFIZER INC-2017329501

PATIENT
  Age: 70 Year
  Sex: Male

DRUGS (14)
  1. METHOTREXATE. [Suspect]
     Active Substance: METHOTREXATE
     Dosage: UNK
     Dates: start: 20170626, end: 20170626
  2. UVEDOSE [Concomitant]
     Active Substance: CHOLECALCIFEROL
     Dosage: 100000 IU, CYCLIC: ONCE EVERY 15 DAYS
  3. SOLUPRED /00016217/ [Concomitant]
     Active Substance: PREDNISOLONE
     Dosage: 60 MG, UNK
  4. LYRICA [Concomitant]
     Active Substance: PREGABALIN
     Dosage: 125 MG, 2X/DAY
  5. VERSATIS [Concomitant]
     Active Substance: LIDOCAINE
     Dosage: UNK
  6. KARDEGIC [Concomitant]
     Active Substance: ASPIRIN LYSINE
     Dosage: 75 MG, UNK
  7. DUROGESIC [Concomitant]
     Active Substance: FENTANYL
     Dosage: 100 UG, 3X/DAY, (16.8 MG/42 CM2)
     Route: 062
  8. TAZOCILLINE [Suspect]
     Active Substance: PIPERACILLIN SODIUM\TAZOBACTAM SODIUM
     Indication: ANTIBIOTIC THERAPY
     Dosage: UNK
     Dates: start: 20170710, end: 20170711
  9. METHOTREXATE. [Suspect]
     Active Substance: METHOTREXATE
     Indication: TONGUE NEOPLASM MALIGNANT STAGE UNSPECIFIED
     Dosage: 74 MG, SINGLE
     Route: 042
     Dates: start: 20170616, end: 20170616
  10. METHOTREXATE. [Suspect]
     Active Substance: METHOTREXATE
     Dosage: 74 MG, SINGLE
     Route: 042
     Dates: start: 20170704, end: 20170704
  11. FLUCONAZOLE. [Suspect]
     Active Substance: FLUCONAZOLE
     Indication: FUNGAL INFECTION
     Dosage: 200 MG, 2X/DAY
     Dates: start: 20170704
  12. SEROPLEX [Concomitant]
     Active Substance: ESCITALOPRAM OXALATE
     Dosage: UNK
  13. OXYNORMORO [Concomitant]
     Active Substance: OXYCODONE
     Dosage: UNK
  14. INSTANYL [Concomitant]
     Active Substance: FENTANYL
     Dosage: UNK

REACTIONS (2)
  - Pancytopenia [Recovered/Resolved]
  - Urinary tract infection [Recovering/Resolving]

NARRATIVE: CASE EVENT DATE: 20170706
